FAERS Safety Report 17114632 (Version 1)
Quarter: 2019Q4

REPORT INFORMATION
  Report Type: Spontaneous
  Country: US (occurrence: US)
  Receive Date: 20191112
  Receipt Date: 20191112
  Transmission Date: 20200122
  Serious: Yes (Hospitalization)
  Sender: FDA-Public Use
  Company Number: None

PATIENT
  Age: 64 Year
  Sex: Female
  Weight: 87.9 kg

DRUGS (1)
  1. NEXAVAR [Suspect]
     Active Substance: SORAFENIB
     Dates: end: 20191021

REACTIONS (7)
  - Abdominal distension [None]
  - Back pain [None]
  - Decreased appetite [None]
  - Hypophagia [None]
  - Disease progression [None]
  - Headache [None]
  - Infrequent bowel movements [None]

NARRATIVE: CASE EVENT DATE: 20191031
